FAERS Safety Report 4754200-1 (Version None)
Quarter: 2005Q3

REPORT INFORMATION
  Report Type: 
  Country: None (occurrence: None)
  Receive Date: 20050826
  Receipt Date: 20050822
  Transmission Date: 20060218
  Serious: Yes (Death)
  Sender: FDA-Public Use
  Company Number: IT-SANOFI-SYNTHELABO-F06200500010

PATIENT

DRUGS (8)
  1. OXALIPLATIN [Suspect]
     Indication: COLORECTAL CANCER
     Dosage: 85 MG/M2
     Route: 041
  2. GEMCITABINE [Suspect]
     Indication: COLORECTAL CANCER
     Dosage: 1000 MG/M2
     Route: 041
  3. LEUCOVORIN CALCIUM [Suspect]
     Indication: COLORECTAL CANCER
     Dosage: 100 MG/M2
     Route: 041
  4. FLUOROURACIL [Suspect]
     Indication: COLORECTAL CANCER
     Dosage: 1200 MG/M2
     Route: 042
  5. GRANULOCYTE MACROPHAGE COLONY-STIMULATING FACTOR [Suspect]
     Indication: COLORECTAL CANCER
     Dosage: 150 MCG
     Route: 058
  6. INTERLEUKIN-2 [Suspect]
     Indication: COLORECTAL CANCER
     Dosage: 1 MIU
     Route: 058
  7. ONDANSETRON [Concomitant]
     Indication: PREMEDICATION
     Dosage: 8 MG
     Route: 042
  8. DEXAMETHASONE [Concomitant]
     Indication: PREMEDICATION
     Dosage: 4 MG
     Route: 042

REACTIONS (1)
  - HAEMORRHAGE [None]
